FAERS Safety Report 4459848-X (Version None)
Quarter: 2004Q3

REPORT INFORMATION
  Report Type: 
  Country: None (occurrence: None)
  Receive Date: 20040928
  Receipt Date: 20040421
  Transmission Date: 20050211
  Serious: No
  Sender: FDA-Public Use
  Company Number: US-BRISTOL-MYERS SQUIBB COMPANY-12566832

PATIENT
  Age: 5 Month
  Sex: Female
  Weight: 7 kg

DRUGS (3)
  1. TRIMOX [Suspect]
     Indication: EAR INFECTION
     Route: 048
     Dates: start: 20040419
  2. TYLENOL [Concomitant]
  3. PEDIACARE [Concomitant]

REACTIONS (2)
  - DERMATITIS DIAPER [None]
  - RASH PAPULAR [None]
